FAERS Safety Report 24207553 (Version 1)
Quarter: 2024Q3

REPORT INFORMATION
  Report Type: Report from Study
  Country: CA (occurrence: CA)
  Receive Date: 20240814
  Receipt Date: 20240814
  Transmission Date: 20241017
  Serious: Yes (Other)
  Sender: UCB
  Company Number: CA-UCBSA-2024040229

PATIENT

DRUGS (7)
  1. CERTOLIZUMAB PEGOL [Suspect]
     Active Substance: CERTOLIZUMAB PEGOL
     Indication: Psoriasis
     Dosage: 400 MILLIGRAM, EV 2 WEEKS(QOW)
     Route: 064
     Dates: start: 20230202
  2. AMITRIPTYLINE [Concomitant]
     Active Substance: AMITRIPTYLINE
     Indication: Product used for unknown indication
     Dosage: 20 MILLIGRAM, ONCE DAILY (QD)
     Route: 064
  3. ROSUVASTATIN [Concomitant]
     Active Substance: ROSUVASTATIN\ROSUVASTATIN CALCIUM
     Indication: Product used for unknown indication
     Dosage: UNK
     Route: 064
  4. MINERALS\VITAMINS [Concomitant]
     Active Substance: MINERALS\VITAMINS
     Indication: Product used for unknown indication
     Dosage: UNK
     Route: 064
  5. CALCIUM [Concomitant]
     Active Substance: CALCIUM
     Indication: Product used for unknown indication
     Dosage: 1000 MILLIGRAM, ONCE DAILY (QD)
     Route: 064
  6. ASPIRIN [Concomitant]
     Active Substance: ASPIRIN
     Indication: Product used for unknown indication
     Dosage: 162 MILLIGRAM, ONCE DAILY (QD)
     Route: 064
  7. FERROUS SULFATE [Concomitant]
     Active Substance: FERROUS SULFATE
     Indication: Product used for unknown indication
     Dosage: 600 MILLIGRAM, ONCE DAILY (QD)
     Route: 064

REACTIONS (3)
  - Premature baby [Unknown]
  - Maternal exposure during pregnancy [Unknown]
  - Maternal exposure before pregnancy [Unknown]

NARRATIVE: CASE EVENT DATE: 20230101
